FAERS Safety Report 19092405 (Version 1)
Quarter: 2021Q2

REPORT INFORMATION
  Report Type: Report from Study
  Country: RU (occurrence: RU)
  Receive Date: 20210405
  Receipt Date: 20210405
  Transmission Date: 20210717
  Serious: Yes (Other)
  Sender: FDA-Public Use
  Company Number: RU-ASTRAZENECA-2021A239467

PATIENT
  Age: 5215 Day
  Sex: Female
  Weight: 48 kg

DRUGS (2)
  1. SELUMETINIB. [Suspect]
     Active Substance: SELUMETINIB
     Indication: NEUROFIBROMA
     Dosage: 25 MG, 70 MG PER OS, EVERY 12 HOURS
     Route: 048
     Dates: start: 20210318
  2. SELUMETINIB. [Suspect]
     Active Substance: SELUMETINIB
     Indication: NEUROFIBROMA
     Dosage: 10 MG, 70 MG DAILY,EVERY 12 HOURS
     Route: 048
     Dates: start: 20210318

REACTIONS (2)
  - Rash [Unknown]
  - Pruritus [Unknown]

NARRATIVE: CASE EVENT DATE: 20210326
